FAERS Safety Report 13456014 (Version 1)
Quarter: 2017Q2

REPORT INFORMATION
  Report Type: Spontaneous
  Country: US (occurrence: US)
  Receive Date: 20170419
  Receipt Date: 20170419
  Transmission Date: 20170830
  Serious: Yes (Other)
  Sender: FDA-Public Use
  Company Number: US-MYLANLABS-2017M1024297

PATIENT

DRUGS (3)
  1. OXYTOCIN. [Suspect]
     Active Substance: OXYTOCIN
     Indication: LABOUR INDUCTION
     Route: 064
  2. DINOPROSTONE. [Suspect]
     Active Substance: DINOPROSTONE
     Indication: LABOUR INDUCTION
     Route: 064
  3. MAGNESIUM SULFATE. [Suspect]
     Active Substance: MAGNESIUM SULFATE
     Indication: CONVULSION PROPHYLAXIS
     Route: 064

REACTIONS (2)
  - Foetal exposure during pregnancy [Recovered/Resolved]
  - Foetal heart rate deceleration abnormality [Unknown]
